FAERS Safety Report 15626922 (Version 1)
Quarter: 2018Q4

REPORT INFORMATION
  Report Type: Spontaneous
  Country: BR (occurrence: BR)
  Receive Date: 20181116
  Receipt Date: 20181116
  Transmission Date: 20190205
  Serious: Yes (Other)
  Sender: FDA-Public Use
  Company Number: BR-PFIZER INC-2018469632

PATIENT
  Sex: Female

DRUGS (2)
  1. LYRICA [Suspect]
     Active Substance: PREGABALIN
     Dosage: UNK, AT NIGHT
  2. LYRICA [Suspect]
     Active Substance: PREGABALIN
     Dosage: UNK, EVERY 12 HOURS

REACTIONS (3)
  - Tongue discolouration [Unknown]
  - Infarction [Unknown]
  - Hypoaesthesia oral [Unknown]
